FAERS Safety Report 17404584 (Version 1)
Quarter: 2020Q1

REPORT INFORMATION
  Report Type: Spontaneous
  Country: US (occurrence: US)
  Receive Date: 20200211
  Receipt Date: 20200211
  Transmission Date: 20200409
  Serious: Yes (Other)
  Sender: FDA-Public Use
  Company Number: US-BEH-2020112792

PATIENT
  Age: 84 Year
  Sex: Female

DRUGS (1)
  1. ALBUMIN HUMAN (INN) [Suspect]
     Active Substance: ALBUMIN HUMAN
     Indication: PLASMAPHERESIS
     Route: 065

REACTIONS (7)
  - Oxygen saturation decreased [Unknown]
  - Agitation [Unknown]
  - Paraesthesia [Unknown]
  - Hypertension [Unknown]
  - Transfusion-related acute lung injury [Unknown]
  - Flushing [Unknown]
  - Dyspnoea [Unknown]
